FAERS Safety Report 4726454-9 (Version None)
Quarter: 2005Q3

REPORT INFORMATION
  Report Type: 
  Country: None (occurrence: None)
  Receive Date: 20050725
  Receipt Date: 20050510
  Transmission Date: 20060218
  Serious: No
  Sender: FDA-Public Use
  Company Number: USA050597734

PATIENT
  Age: 62 Year
  Sex: Male

DRUGS (14)
  1. STRATTERA [Suspect]
     Indication: ATTENTION DEFICIT/HYPERACTIVITY DISORDER
     Dosage: 80 MG DAY
     Dates: start: 20050201
  2. FLUOXETINE [Concomitant]
  3. ATENOLOL [Concomitant]
  4. ASPIRIN [Concomitant]
  5. NEXIUM [Concomitant]
  6. LIPITOR [Concomitant]
  7. NITRO (GLYCERYL TRINITRATE) [Concomitant]
  8. ASTELIN (AZELASTIE HYDROCHLORIDE) [Concomitant]
  9. AMBIEN [Concomitant]
  10. ROGAINE [Concomitant]
  11. UROXATRAL [Concomitant]
  12. SAW PALMETTO [Concomitant]
  13. PYGEUM (PYGEUM AFRICANUM) [Concomitant]
  14. SELENIUM SULFIDE [Concomitant]

REACTIONS (4)
  - CONSTIPATION [None]
  - GASTROENTERITIS VIRAL [None]
  - NAUSEA [None]
  - SOMNOLENCE [None]
